FAERS Safety Report 4448719-0 (Version None)
Quarter: 2004Q3

REPORT INFORMATION
  Report Type: 
  Country: None (occurrence: None)
  Receive Date: 20040909
  Receipt Date: 20040827
  Transmission Date: 20050211
  Serious: Yes (Death, Life-Threatening, Hospitalization)
  Sender: FDA-Public Use
  Company Number: 2004US000993

PATIENT
  Age: 52 Year
  Sex: Female

DRUGS (8)
  1. PROGRAF [Suspect]
     Indication: RENAL TRANSPLANT
     Dosage: 2.00 MG, UID/QD : 12.00 MG, UID/QD : 2.00 MG, UID/QD
     Dates: start: 20040804, end: 20040810
  2. PROGRAF [Suspect]
     Indication: RENAL TRANSPLANT
     Dosage: 2.00 MG, UID/QD : 12.00 MG, UID/QD : 2.00 MG, UID/QD
     Dates: start: 20040810, end: 20040817
  3. PROGRAF [Suspect]
     Indication: RENAL TRANSPLANT
     Dosage: 2.00 MG, UID/QD : 12.00 MG, UID/QD : 2.00 MG, UID/QD
     Dates: start: 20040804
  4. MYCOPHENOLATE MOFETIL [Concomitant]
  5. PREDNISONE [Concomitant]
  6. ORTHOCLONE OKT3 [Concomitant]
  7. SULFAMETHOXAZOLE + TRIMETHOPRIM [Concomitant]
  8. CEFEPIME [Concomitant]

REACTIONS (8)
  - AREFLEXIA [None]
  - BRAIN OEDEMA [None]
  - CONFUSIONAL STATE [None]
  - CONVULSION [None]
  - HAEMODIALYSIS [None]
  - NEUROTOXICITY [None]
  - PARESIS [None]
  - STATUS EPILEPTICUS [None]
